FAERS Safety Report 19678139 (Version 2)
Quarter: 2023Q4

REPORT INFORMATION
  Report Type: Other
  Country: FR (occurrence: None)
  Receive Date: 20210810
  Receipt Date: 20231207
  Transmission Date: 20240109
  Serious: Yes (Other)
  Sender: FDA-Public Use
  Company Number: FR-NIVAGEN-000003

PATIENT
  Age: 67 Year
  Sex: Female
  Weight: 85 kg

DRUGS (4)
  1. SUCCINYLCHOLINE [Suspect]
     Active Substance: SUCCINYLCHOLINE
     Indication: Neuromuscular blockade
     Route: 040
  2. KETAMINE [Suspect]
     Active Substance: KETAMINE
     Indication: Neuromuscular blockade
     Route: 040
  3. REMIFENTANIL HYDROCHLORIDE [Concomitant]
     Active Substance: REMIFENTANIL HYDROCHLORIDE
     Indication: Neuromuscular blockade
     Route: 040
  4. PROPOFOL [Concomitant]
     Active Substance: PROPOFOL
     Indication: Neuromuscular blockade
     Route: 040

REACTIONS (2)
  - Airway complication of anaesthesia [Recovered/Resolved]
  - Drug resistance [Unknown]
